FAERS Safety Report 13897058 (Version 1)
Quarter: 2017Q3

REPORT INFORMATION
  Report Type: Spontaneous
  Country: US (occurrence: None)
  Receive Date: 20170822
  Receipt Date: 20170822
  Transmission Date: 20171127
  Serious: No
  Sender: FDA-Public Use
  Company Number: None

PATIENT
  Age: 70 Year
  Sex: Female

DRUGS (8)
  1. NITROFURANTOIN. [Suspect]
     Active Substance: NITROFURANTOIN
     Dates: start: 20131106, end: 20150430
  2. VERAPAMIL [Concomitant]
     Active Substance: VERAPAMIL HYDROCHLORIDE
  3. DOXY [Concomitant]
     Active Substance: DOXYCYCLINE
  4. LOVASTATIN. [Concomitant]
     Active Substance: LOVASTATIN
  5. LISINOPRIL. [Concomitant]
     Active Substance: LISINOPRIL
  6. CEFUROXIME. [Concomitant]
     Active Substance: CEFUROXIME
  7. LOSARTAN. [Concomitant]
     Active Substance: LOSARTAN
  8. ATORVASTATIN [Suspect]
     Active Substance: ATORVASTATIN
     Dates: start: 20140701, end: 20150430

REACTIONS (5)
  - Oedema peripheral [None]
  - Cough [None]
  - Malaise [None]
  - Drug-induced liver injury [None]
  - Chromaturia [None]

NARRATIVE: CASE EVENT DATE: 20150429
